FAERS Safety Report 16389389 (Version 1)
Quarter: 2019Q3

REPORT INFORMATION
  Report Type: Spontaneous
  Country: US (occurrence: US)
  Receive Date: 20190601
  Receipt Date: 20190601
  Transmission Date: 20191004
  Serious: Yes (Other)
  Sender: FDA-Public Use
  Company Number: None

PATIENT
  Age: 18 Year
  Sex: Female
  Weight: 58.5 kg

DRUGS (5)
  1. WELLBUTRIN [Concomitant]
     Active Substance: BUPROPION HYDROCHLORIDE
  2. MELATONIN [Concomitant]
     Active Substance: MELATONIN
  3. PRISTIQ EXTENDED-RELEASE [Concomitant]
     Active Substance: DESVENLAFAXINE SUCCINATE
  4. VITAMIN D [Concomitant]
     Active Substance: VITAMIN D NOS
  5. CBD GUMMIES FROM HEMP 300 MG [Suspect]
     Active Substance: CANNABIDIOL\HERBALS
     Indication: ANXIETY
     Dosage: ?          OTHER STRENGTH:300 MG;QUANTITY:1 GUMMY;?
     Route: 048
     Dates: start: 20190523, end: 20190527

REACTIONS (2)
  - Withdrawal syndrome [None]
  - Drug interaction [None]

NARRATIVE: CASE EVENT DATE: 20190527
